FAERS Safety Report 15450771 (Version 1)
Quarter: 2018Q4

REPORT INFORMATION
  Report Type: Other
  Country: ES (occurrence: ES)
  Receive Date: 20181001
  Receipt Date: 20181001
  Transmission Date: 20190204
  Serious: Yes (Other)
  Sender: FDA-Public Use
  Company Number: ES-APOTEX-2018AP021415

PATIENT
  Age: 96 Year
  Sex: Female
  Weight: 47.7 kg

DRUGS (1)
  1. OMEPRAZOLE. [Suspect]
     Active Substance: OMEPRAZOLE
     Indication: PRODUCT USED FOR UNKNOWN INDICATION
     Dosage: 20 MG, EVERY 12 HOUR
     Route: 048
     Dates: start: 20180105, end: 20180109

REACTIONS (1)
  - Myopathy [Recovering/Resolving]

NARRATIVE: CASE EVENT DATE: 20180109
